FAERS Safety Report 6934149-6 (Version None)
Quarter: 2010Q3

REPORT INFORMATION
  Report Type: 
  Country: None (occurrence: None)
  Receive Date: 20100820
  Receipt Date: 20100810
  Transmission Date: 20110219
  Serious: Yes (Hospitalization)
  Sender: FDA-Public Use
  Company Number: DE-ABBOTT-10P-062-0658740-00

PATIENT
  Age: 42 Year
  Sex: Male

DRUGS (3)
  1. CLARITHROMYCIN [Suspect]
     Indication: HELICOBACTER INFECTION
  2. PANTOPRAZOLE [Interacting]
     Indication: HELICOBACTER INFECTION
  3. AMOXICILLIN [Interacting]
     Indication: HELICOBACTER INFECTION

REACTIONS (2)
  - ACUTE PSYCHOSIS [None]
  - DRUG INTERACTION [None]
